FAERS Safety Report 16260112 (Version 2)
Quarter: 2020Q2

REPORT INFORMATION
  Report Type: Spontaneous
  Country: US (occurrence: US)
  Receive Date: 20190501
  Receipt Date: 20200402
  Transmission Date: 20200713
  Serious: Yes (Other)
  Sender: FDA-Public Use
  Company Number: US-PFIZER INC-2019108396

PATIENT
  Age: 61 Year
  Sex: Female
  Weight: 95 kg

DRUGS (3)
  1. LYRICA [Suspect]
     Active Substance: PREGABALIN
     Indication: NERVE INJURY
     Dosage: 150 MG, DAILY (TWO CAPSULES IN THE MORNING AND ONE IN THE AFTERNOON)
     Route: 048
     Dates: start: 201902
  2. LYRICA [Suspect]
     Active Substance: PREGABALIN
     Dosage: 50 MG, 3X/DAY
     Route: 048
     Dates: start: 201903
  3. LYRICA [Suspect]
     Active Substance: PREGABALIN
     Indication: NEURALGIA
     Dosage: 50 MG, 3X/DAY (1 CAPSULE BY MOUTH THREE TIMES A DAY)
     Route: 048

REACTIONS (7)
  - Neck pain [Unknown]
  - Pruritus [Unknown]
  - Haemorrhage [Unknown]
  - Pain [Unknown]
  - Expired product administered [Unknown]
  - Intentional product misuse [Unknown]
  - Anger [Unknown]

NARRATIVE: CASE EVENT DATE: 202003
